FAERS Safety Report 8976569 (Version 1)
Quarter: 2012Q4

REPORT INFORMATION
  Report Type: 
  Country: US (occurrence: US)
  Receive Date: 20121220
  Receipt Date: 20121220
  Transmission Date: 20130627
  Serious: Yes (Other)
  Sender: FDA-Public Use
  Company Number: CHPA2012US025106

PATIENT
  Age: 71 Year
  Sex: Female

DRUGS (4)
  1. TRIAMINIC [Suspect]
     Indication: RHINORRHOEA
     Dosage: 1 strip, as needed
     Route: 048
  2. MULTIPLE VITAMINS [Concomitant]
  3. MINERALS NOS [Concomitant]
  4. SERTRALINA WINTHROP [Concomitant]

REACTIONS (7)
  - Pulmonary fibrosis [Not Recovered/Not Resolved]
  - Breast cancer [Recovered/Resolved]
  - Lung disorder [Not Recovered/Not Resolved]
  - Upper-airway cough syndrome [Not Recovered/Not Resolved]
  - Concussion [Recovering/Resolving]
  - Memory impairment [Recovering/Resolving]
  - Expired drug administered [Unknown]
